FAERS Safety Report 18286571 (Version 1)
Quarter: 2020Q3

REPORT INFORMATION
  Report Type: Spontaneous
  Country: JP (occurrence: JP)
  Receive Date: 20200920
  Receipt Date: 20200920
  Transmission Date: 20201103
  Serious: Yes (Death)
  Sender: FDA-Public Use
  Company Number: JP-ROCHE-2680175

PATIENT
  Age: 7 Decade
  Sex: Female

DRUGS (9)
  1. XOFLUZA [Suspect]
     Active Substance: BALOXAVIR MARBOXIL
     Indication: INFLUENZA
     Dosage: ONCE
     Route: 048
     Dates: start: 201901, end: 201901
  2. ALESION [Concomitant]
     Active Substance: EPINASTINE HYDROCHLORIDE
  3. PREDONINE [Concomitant]
     Active Substance: PREDNISOLONE
  4. MUCOSTA [Concomitant]
     Active Substance: REBAMIPIDE
  5. MIYA?BM [Concomitant]
     Active Substance: CLOSTRIDIUM BUTYRICUM SPORES STRAIN M-55
  6. LIPITOR [Concomitant]
     Active Substance: ATORVASTATIN CALCIUM
  7. NAUZELIN [Concomitant]
     Active Substance: DOMPERIDONE
  8. THYRADIN [Concomitant]
     Active Substance: LEVOTHYROXINE
  9. CALONAL [Concomitant]
     Active Substance: ACETAMINOPHEN

REACTIONS (5)
  - Blood creatinine increased [Fatal]
  - Rhabdomyolysis [Fatal]
  - Aspartate aminotransferase increased [Fatal]
  - Metabolic acidosis [Fatal]
  - Alanine aminotransferase increased [Fatal]
